FAERS Safety Report 24312030 (Version 1)
Quarter: 2024Q3

REPORT INFORMATION
  Report Type: Spontaneous
  Country: CA (occurrence: CA)
  Receive Date: 20240912
  Receipt Date: 20240912
  Transmission Date: 20241016
  Serious: Yes (Disabling)
  Sender: TEVA
  Company Number: CA-TEVA-VS-3240278

PATIENT
  Age: 35 Year
  Sex: Female
  Weight: 72 kg

DRUGS (2)
  1. BUPROPION [Suspect]
     Active Substance: BUPROPION
     Indication: Suicidal ideation
     Dosage: TEVA-BUPROPION XL
     Route: 048
  2. CANNABIS SATIVA SUBSP. INDICA TOP [Concomitant]
     Active Substance: CANNABIS SATIVA SUBSP. INDICA TOP
     Indication: Product used for unknown indication

REACTIONS (5)
  - Mental impairment [Unknown]
  - Conversion disorder [Unknown]
  - Muscle contractions involuntary [Unknown]
  - Dyskinesia [Unknown]
  - Suicidal ideation [Unknown]
